FAERS Safety Report 5008592-9 (Version None)
Quarter: 2006Q2

REPORT INFORMATION
  Report Type: 
  Country: None (occurrence: None)
  Receive Date: 20060523
  Receipt Date: 20060512
  Transmission Date: 20061013
  Serious: Yes (Hospitalization)
  Sender: FDA-Public Use
  Company Number: DE-ROCHE-447556

PATIENT
  Age: 47 Year
  Sex: Female

DRUGS (5)
  1. ZENAPAX [Suspect]
     Dosage: RECEIVED ON DAY 0 AS PER PROTOCOL.
     Route: 042
  2. ZENAPAX [Suspect]
     Dosage: FOR FOUR DOSES.
     Route: 042
  3. MYCOPHENOLATE MOFETIL [Suspect]
     Route: 048
  4. CYCLOSPORINE [Suspect]
     Route: 048
  5. CORTICOSTEROIDS [Suspect]
     Route: 065

REACTIONS (1)
  - CYTOMEGALOVIRUS INFECTION [None]
